FAERS Safety Report 6818861-5 (Version None)
Quarter: 2010Q3

REPORT INFORMATION
  Report Type: 
  Country: None (occurrence: None)
  Receive Date: 20100707
  Receipt Date: 20100303
  Transmission Date: 20110219
  Serious: Yes (Other)
  Sender: FDA-Public Use
  Company Number: US-ASTRAZENECA-2009SE19381

PATIENT
  Sex: Female

DRUGS (10)
  1. SEROQUEL [Suspect]
     Indication: THINKING ABNORMAL
     Dosage: 25 TO 900 MG
     Route: 048
     Dates: start: 20031124
  2. SEROQUEL [Suspect]
     Indication: ANXIETY
     Dosage: 25 TO 900 MG
     Route: 048
     Dates: start: 20031124
  3. PROZAC [Concomitant]
     Indication: ANXIETY
     Dates: start: 20031124
  4. PROZAC [Concomitant]
     Indication: DEPRESSION
     Dates: start: 20031124
  5. GEODON [Concomitant]
     Indication: PSYCHOTIC DISORDER
     Route: 048
     Dates: start: 20031124
  6. GEODON [Concomitant]
     Indication: AFFECTIVE DISORDER
     Route: 048
     Dates: start: 20031124
  7. GEODON [Concomitant]
     Indication: THINKING ABNORMAL
     Route: 048
     Dates: start: 20031124
  8. TRILEPTAL [Concomitant]
     Indication: AFFECTIVE DISORDER
     Dosage: 600 MG AM AND 900 PM
     Dates: start: 20031124
  9. CLOZARIL [Concomitant]
     Indication: THINKING ABNORMAL
     Dosage: 100 MG 2 HS
     Dates: start: 20041124
  10. LEXAPRO [Concomitant]
     Indication: DEPRESSIVE SYMPTOM
     Route: 048
     Dates: start: 20041124

REACTIONS (2)
  - DIABETES MELLITUS [None]
  - NEUROPATHY PERIPHERAL [None]
